FAERS Safety Report 9235507 (Version 1)
Quarter: 2013Q1

REPORT INFORMATION
  Report Type: Spontaneous
  Country: US (occurrence: None)
  Receive Date: 20121031
  Receipt Date: 20121031
  Transmission Date: 20140127
  Serious: Yes (Other)
  Sender: FDA-Public Use
  Company Number: PHEH2012US015697

PATIENT
  Age: 50 Year
  Sex: Female
  Weight: 83.92 kg

DRUGS (3)
  1. GILENYA (FTY) CAPSULE, 0.5MG [Suspect]
     Indication: MULTIPLE SCLEROSIS
     Route: 048
     Dates: start: 20120806
  2. VITAMINS (ASCORBIC ACID, ERGOCALCIFEROL, NICOTINAMIDE, RETINOL, ROBOFLAVIN, THIAMINE, HYDROCHLORIDE) [Concomitant]
  3. IBUPROFEN (IBUPROFEN) [Concomitant]

REACTIONS (7)
  - Urinary tract infection [None]
  - Headache [None]
  - Back pain [None]
  - Pollakiuria [None]
  - Bladder discomfort [None]
  - Urine abnormality [None]
  - Chromaturia [None]
